FAERS Safety Report 6072190-9 (Version None)
Quarter: 2009Q1

REPORT INFORMATION
  Report Type: 
  Country: None (occurrence: None)
  Receive Date: 20090206
  Receipt Date: 20090206
  Transmission Date: 20090719
  Serious: Yes (Hospitalization)
  Sender: FDA-Public Use
  Company Number: None

PATIENT
  Age: 44 Year
  Sex: Male
  Weight: 57 kg

DRUGS (16)
  1. INTELENCE [Suspect]
     Indication: ACQUIRED IMMUNODEFICIENCY SYNDROME
     Dosage: 200 MG (2 TABLETS) ONCE DAILY PO
     Route: 048
     Dates: start: 20080701, end: 20090101
  2. INTELENCE [Suspect]
     Indication: HIV INFECTION
     Dosage: 200 MG (2 TABLETS) ONCE DAILY PO
     Route: 048
     Dates: start: 20080701, end: 20090101
  3. MINOCYCLINE [Concomitant]
  4. AUGMENTIN '125' [Concomitant]
  5. PYRIMETHAMINE TAB [Concomitant]
  6. CLINDAMYCIN HCL [Concomitant]
  7. KALETRA [Concomitant]
  8. REMERON [Concomitant]
  9. LEUCOVORIN CALCIUM [Concomitant]
  10. RALTEGRAVIR [Concomitant]
  11. PENTAMIDINE [Concomitant]
  12. AZITHROMYCIN [Concomitant]
  13. REGLAN [Concomitant]
  14. KEPPRA [Concomitant]
  15. PROMETHAZINE [Concomitant]
  16. VALGANCICLO [Concomitant]

REACTIONS (9)
  - ALANINE AMINOTRANSFERASE INCREASED [None]
  - ASPARTATE AMINOTRANSFERASE INCREASED [None]
  - BLOOD BILIRUBIN INCREASED [None]
  - RASH MACULO-PAPULAR [None]
  - RASH PRURITIC [None]
  - SKIN EXFOLIATION [None]
  - SKIN HYPERPIGMENTATION [None]
  - SKIN LESION [None]
  - SWELLING FACE [None]
